FAERS Safety Report 15149406 (Version 1)
Quarter: 2018Q3

REPORT INFORMATION
  Report Type: Spontaneous
  Country: US (occurrence: US)
  Receive Date: 20180619
  Receipt Date: 20180619
  Transmission Date: 20181010
  Serious: Yes (Hospitalization)
  Sender: FDA-Public Use
  Company Number: None

PATIENT
  Sex: Female

DRUGS (10)
  1. DIOVAN [Concomitant]
     Active Substance: VALSARTAN
  2. CRESTOR [Concomitant]
     Active Substance: ROSUVASTATIN CALCIUM
  3. PLAVIX [Concomitant]
     Active Substance: CLOPIDOGREL BISULFATE
  4. PANTOPRAZOLE [Concomitant]
     Active Substance: PANTOPRAZOLE
  5. VITAMIN C [Concomitant]
     Active Substance: ASCORBIC ACID
  6. NORVASC [Concomitant]
     Active Substance: AMLODIPINE BESYLATE
  7. METHOTREXATE. [Concomitant]
     Active Substance: METHOTREXATE
  8. THIAMINE [Concomitant]
     Active Substance: THIAMINE
  9. ENBREL [Suspect]
     Active Substance: ETANERCEPT
     Indication: PSORIATIC ARTHROPATHY
     Dosage: ?          OTHER FREQUENCY:QW;?
     Route: 058
     Dates: start: 20080513
  10. IRON [Concomitant]
     Active Substance: IRON

REACTIONS (2)
  - Infection [None]
  - Drug dose omission [None]
